FAERS Safety Report 14805322 (Version 1)
Quarter: 2018Q2

REPORT INFORMATION
  Report Type: Report from Study
  Country: JO (occurrence: JO)
  Receive Date: 20180425
  Receipt Date: 20180425
  Transmission Date: 20180711
  Serious: Yes (Hospitalization, Other)
  Sender: FDA-Public Use
  Company Number: JO-CELLTRION INC.-2018JO019290

PATIENT

DRUGS (13)
  1. HCTZ [Concomitant]
     Active Substance: HYDROCHLOROTHIAZIDE
     Dosage: 25 MG, EVERY 24 HOURS
  2. ENALAPRIL [Concomitant]
     Active Substance: ENALAPRIL
     Dosage: 20 MG, EVERY 12 HOURS
  3. ATORVASTATIN [Concomitant]
     Active Substance: ATORVASTATIN
     Dosage: 20 MG, EVERY 24 HOURS
  4. CARVEDILOL. [Concomitant]
     Active Substance: CARVEDILOL
     Dosage: 6.25 MG, DAILY
  5. REMSIMA [Suspect]
     Active Substance: INFLIXIMAB
     Dosage: 300 MG, AS PER PROTOCOL
     Route: 042
  6. AMLODIPINE [Concomitant]
     Active Substance: AMLODIPINE BESYLATE
     Dosage: 10 MG, 5 MG IN 12 HOURS
  7. REMSIMA [Suspect]
     Active Substance: INFLIXIMAB
     Indication: RHEUMATOID ARTHRITIS
     Dosage: 300 MG, AS PER PROTOCOL
     Route: 042
     Dates: start: 20171127, end: 20171127
  8. SALBUTAMOL [Concomitant]
     Active Substance: ALBUTEROL
  9. ASA [Concomitant]
     Active Substance: ASPIRIN
  10. PREDNISOLONE. [Concomitant]
     Active Substance: PREDNISOLONE
     Dosage: 5 MG, 1 IN 24 HOURS
  11. LASIX [Concomitant]
     Active Substance: FUROSEMIDE
     Dosage: 40 MG, DAILY
     Route: 048
  12. REMSIMA [Suspect]
     Active Substance: INFLIXIMAB
     Dosage: 300 MG, AS PER PROTOCOL
     Route: 042
     Dates: start: 20180114, end: 20180114
  13. REMSIMA [Suspect]
     Active Substance: INFLIXIMAB
     Dosage: 300 MG, AS PER PROTOCOL
     Route: 042
     Dates: start: 201803, end: 201803

REACTIONS (5)
  - Dyspnoea exertional [Unknown]
  - Left ventricular failure [Unknown]
  - Inappropriate schedule of drug administration [Unknown]
  - Orthopnoea [Unknown]
  - Oedema peripheral [Not Recovered/Not Resolved]

NARRATIVE: CASE EVENT DATE: 201803
